FAERS Safety Report 7823912-5 (Version None)
Quarter: 2011Q4

REPORT INFORMATION
  Report Type: 
  Country: None (occurrence: None)
  Receive Date: 20111019
  Receipt Date: 20111014
  Transmission Date: 20120403
  Serious: Yes (Hospitalization, Other)
  Sender: FDA-Public Use
  Company Number: JP-PFIZER INC-2011234538

PATIENT
  Age: 63 Year
  Sex: Male

DRUGS (1)
  1. SUTENT [Suspect]
     Indication: GASTROINTESTINAL STROMAL TUMOUR
     Dosage: 50 MG, 1X/DAY
     Route: 048
     Dates: start: 20110902, end: 20110930

REACTIONS (5)
  - HYPOTHYROIDISM [None]
  - LIVER ABSCESS [None]
  - HYPERTENSION [None]
  - PLATELET COUNT DECREASED [None]
  - HAEMATURIA [None]
